FAERS Safety Report 6524575-1 (Version None)
Quarter: 2010Q1

REPORT INFORMATION
  Report Type: 
  Country: None (occurrence: None)
  Receive Date: 20100104
  Receipt Date: 20091221
  Transmission Date: 20100710
  Serious: Yes (Other)
  Sender: FDA-Public Use
  Company Number: PHHY2009JP57681

PATIENT
  Age: 67 Year
  Sex: Male

DRUGS (3)
  1. DIOVAN [Suspect]
     Indication: HYPERTENSION
     Dosage: 40 MG DAILY
     Route: 048
     Dates: start: 20090403, end: 20090924
  2. CLOTIAZEPAM [Concomitant]
     Dosage: 15 MG, UNK
     Route: 048
     Dates: end: 20090714
  3. BENZBROMARONE [Concomitant]
     Dosage: 25 MG, UNK
     Route: 048
     Dates: end: 20090714

REACTIONS (3)
  - ALANINE AMINOTRANSFERASE INCREASED [None]
  - ASPARTATE AMINOTRANSFERASE INCREASED [None]
  - LIVER DISORDER [None]
